FAERS Safety Report 5278663-0 (Version None)
Quarter: 2007Q1

REPORT INFORMATION
  Report Type: 
  Country: None (occurrence: None)
  Receive Date: 20061213
  Receipt Date: 20050705
  Transmission Date: 20070707
  Serious: No
  Sender: FDA-Public Use
  Company Number: 2005UW07492

PATIENT
  Age: 28 Year
  Sex: Male
  Weight: 109.7705 kg

DRUGS (9)
  1. SEROQUEL [Suspect]
     Dosage: 200 MG TID PO
     Route: 048
  2. SEROQUEL [Suspect]
     Dosage: 25 MG BID PO
     Route: 048
     Dates: end: 20050226
  3. GEODON [Concomitant]
  4. LORAZEPAM [Concomitant]
  5. NEXIUM [Concomitant]
  6. ANTABUSE [Concomitant]
  7. PAXIL [Concomitant]
  8. VISTARIL [Concomitant]
  9. KLONOPIN [Concomitant]

REACTIONS (2)
  - DIABETES MELLITUS NON-INSULIN-DEPENDENT [None]
  - LIVER FUNCTION TEST ABNORMAL [None]
